FAERS Safety Report 15890906 (Version 5)
Quarter: 2022Q4

REPORT INFORMATION
  Report Type: Spontaneous
  Country: FR (occurrence: FR)
  Receive Date: 20190130
  Receipt Date: 20221007
  Transmission Date: 20230112
  Serious: Yes (Death, Hospitalization, Other)
  Sender: FDA-Public Use
  Company Number: None

PATIENT
  Age: 19 Month
  Sex: Female
  Weight: 10 kg

DRUGS (15)
  1. ONDANSETRON [Suspect]
     Active Substance: ONDANSETRON
     Indication: Nausea
     Dosage: 4 MG, BID
     Route: 048
     Dates: start: 20060523
  2. ONDANSETRON [Suspect]
     Active Substance: ONDANSETRON
     Indication: Vomiting
     Dosage: 4 MG, QOD
     Route: 048
     Dates: start: 20060523
  3. FLUDARABINE PHOSPHATE [Suspect]
     Active Substance: FLUDARABINE PHOSPHATE
     Indication: Acute myeloid leukaemia
     Dosage: 10 MG, QD
     Route: 042
     Dates: start: 20060525, end: 20060529
  4. FASTURTEC [Suspect]
     Active Substance: RASBURICASE
     Indication: Tumour lysis syndrome
     Dosage: 1.5 MG, QD
     Route: 042
     Dates: start: 20060519, end: 20060519
  5. FASTURTEC [Suspect]
     Active Substance: RASBURICASE
     Indication: Gout
     Dosage: 1.5 MG, QD
     Route: 042
     Dates: start: 20060523, end: 20060523
  6. FASTURTEC [Suspect]
     Active Substance: RASBURICASE
     Dosage: 1.5 MG, QD
     Route: 042
     Dates: start: 20060526, end: 20060526
  7. FASTURTEC [Suspect]
     Active Substance: RASBURICASE
     Dosage: UNK, QD
     Route: 042
     Dates: start: 20060621, end: 20060621
  8. FASTURTEC [Suspect]
     Active Substance: RASBURICASE
     Dosage: UNK, QD
     Route: 042
     Dates: start: 20060625, end: 20060625
  9. LENOGRASTIM [Suspect]
     Active Substance: LENOGRASTIM
     Indication: Agranulocytosis
     Dosage: 13 IU, QD
     Route: 042
     Dates: start: 20060524, end: 20060529
  10. DAUNOXOME [Suspect]
     Active Substance: DAUNORUBICIN CITRATE
     Indication: Acute myeloid leukaemia
     Dosage: 220 MG/M2,QD (100 MG DAILY)
     Route: 042
     Dates: start: 20060525, end: 20060525
  11. CYTARABINE [Suspect]
     Active Substance: CYTARABINE
     Indication: Acute myeloid leukaemia
     Dosage: 26 MG, QD
     Route: 042
     Dates: start: 20060524, end: 20060524
  12. CYTARABINE [Suspect]
     Active Substance: CYTARABINE
     Dosage: 26 MG, QD
     Route: 037
     Dates: start: 20060524, end: 20060524
  13. BACTRIM [Concomitant]
     Active Substance: SULFAMETHOXAZOLE\TRIMETHOPRIM
     Indication: Antifungal prophylaxis
     Dosage: UNK
     Route: 065
     Dates: start: 20060524
  14. ALIZAPRIDE HYDROCHLORIDE [Concomitant]
     Active Substance: ALIZAPRIDE HYDROCHLORIDE
     Indication: Product used for unknown indication
     Dosage: UNK
     Route: 065
     Dates: start: 20060524
  15. CARDIOXANE [Concomitant]
     Active Substance: DEXRAZOXANE HYDROCHLORIDE
     Indication: Product used for unknown indication
     Dosage: UNK
     Route: 042
     Dates: start: 200605, end: 200605

REACTIONS (10)
  - Pain [Fatal]
  - Accidental overdose [Fatal]
  - Vomiting [Fatal]
  - Chills [Fatal]
  - Cardiac arrest [Fatal]
  - Fatigue [Fatal]
  - Product administration error [Fatal]
  - Respiratory distress [Fatal]
  - Cardiac failure [Fatal]
  - Aplasia [Fatal]

NARRATIVE: CASE EVENT DATE: 20060525
